FAERS Safety Report 13841297 (Version 1)
Quarter: 2017Q3

REPORT INFORMATION
  Report Type: Spontaneous
  Country: US (occurrence: US)
  Receive Date: 20170807
  Receipt Date: 20170807
  Transmission Date: 20171127
  Serious: Yes (Other)
  Sender: FDA-Public Use
  Company Number: PHHY2017US111893

PATIENT

DRUGS (1)
  1. PANOBINOSTAT [Suspect]
     Active Substance: PANOBINOSTAT
     Indication: MALIGNANT MELANOMA
     Dosage: 5 MG, TIW
     Route: 048

REACTIONS (1)
  - Hydronephrosis [Unknown]
